FAERS Safety Report 13601090 (Version 2)
Quarter: 2017Q4

REPORT INFORMATION
  Report Type: Spontaneous
  Country: CO (occurrence: CO)
  Receive Date: 20170601
  Receipt Date: 20171010
  Transmission Date: 20180320
  Serious: Yes (Other)
  Sender: FDA-Public Use
  Company Number: CO-AMGEN-COLSP2016127227

PATIENT
  Age: 35 Year
  Sex: Female
  Weight: 64 kg

DRUGS (5)
  1. MYCOPHENOLATE SODIUM [Concomitant]
     Active Substance: MYCOPHENOLATE SODIUM
     Indication: RENAL TRANSPLANT
     Dosage: 360 MG, BID
     Dates: start: 20160518
  2. TACROLIMUS. [Concomitant]
     Active Substance: TACROLIMUS
     Indication: RENAL TRANSPLANT
     Dosage: 5 MG, QD
     Dates: start: 20160518
  3. PREDNISOLONE. [Concomitant]
     Active Substance: PREDNISOLONE
     Indication: RENAL TRANSPLANT
     Dosage: 5 MG, QD
     Dates: start: 20160413
  4. MIMPARA [Suspect]
     Active Substance: CINACALCET HYDROCHLORIDE
     Dosage: 60 MG, QD
     Route: 048
     Dates: start: 20160616
  5. MIMPARA [Suspect]
     Active Substance: CINACALCET HYDROCHLORIDE
     Indication: HYPERPARATHYROIDISM PRIMARY
     Dosage: 30 MG, QD
     Route: 048
     Dates: start: 20160616

REACTIONS (2)
  - Blood parathyroid hormone increased [Not Recovered/Not Resolved]
  - Drug ineffective [Not Recovered/Not Resolved]

NARRATIVE: CASE EVENT DATE: 20160901
